FAERS Safety Report 17157208 (Version 1)
Quarter: 2019Q4

REPORT INFORMATION
  Report Type: Spontaneous
  Country: ES (occurrence: ES)
  Receive Date: 20191216
  Receipt Date: 20191216
  Transmission Date: 20200122
  Serious: Yes (Hospitalization, Disabling, Other)
  Sender: FDA-Public Use
  Company Number: ES-AMGEN-ESPSP2019192533

PATIENT
  Age: 79 Year
  Sex: Male
  Weight: 68.5 kg

DRUGS (6)
  1. KYPROLIS [Suspect]
     Active Substance: CARFILZOMIB
     Dosage: 90 MILLIGRAM, 1, 2, 8, 9,15, 16 ON CYCLES OF 28 DAYS.
     Route: 042
     Dates: end: 20191008
  2. KYPROLIS [Suspect]
     Active Substance: CARFILZOMIB
     Indication: PLASMA CELL MYELOMA
     Dosage: 90 MILLIGRAM, 1, 2, 8, 9,15, 16 ON CYCLES OF 28 DAYS.
     Route: 042
     Dates: start: 20190304, end: 20191008
  3. KYPROLIS [Suspect]
     Active Substance: CARFILZOMIB
     Dosage: 90 MILLIGRAM, 1, 2, 8, 9,15, 16 ON CYCLES OF 28 DAYS.
     Route: 042
     Dates: end: 20191008
  4. KYPROLIS [Suspect]
     Active Substance: CARFILZOMIB
     Dosage: 90 MILLIGRAM, 1, 2, 8, 9,15, 16 ON CYCLES OF 28 DAYS.
     Route: 042
     Dates: end: 20191008
  5. DEXAMETHASONE. [Concomitant]
     Active Substance: DEXAMETHASONE
     Indication: PLASMA CELL MYELOMA
     Dosage: 20 MILLIGRAM, MONDAY AND TUESDAY
     Dates: start: 20190304, end: 20191008
  6. EXJADE [Concomitant]
     Active Substance: DEFERASIROX
     Indication: IRON OVERLOAD
     Dosage: 360 MILLIGRAM, QD
     Dates: start: 20180626, end: 20191014

REACTIONS (1)
  - Necrotising fasciitis [Not Recovered/Not Resolved]

NARRATIVE: CASE EVENT DATE: 20191014
